FAERS Safety Report 5189401-4 (Version None)
Quarter: 2006Q4

REPORT INFORMATION
  Report Type: 
  Country: None (occurrence: None)
  Receive Date: 20061215
  Receipt Date: 20061204
  Transmission Date: 20070319
  Serious: Yes (Death, Other)
  Sender: FDA-Public Use
  Company Number: 2005104597

PATIENT
  Sex: Male

DRUGS (3)
  1. NEURONTIN [Suspect]
     Indication: ANXIETY
     Dates: start: 20011201, end: 20020801
  2. NEURONTIN [Suspect]
     Indication: PAIN
     Dates: start: 20011201, end: 20020801
  3. NEURONTIN [Suspect]
     Indication: STRESS
     Dates: start: 20011201, end: 20020801

REACTIONS (4)
  - COMPLETED SUICIDE [None]
  - DRUG INEFFECTIVE [None]
  - GUN SHOT WOUND [None]
  - HEAD INJURY [None]
